FAERS Safety Report 10823988 (Version 2)
Quarter: 2015Q1

REPORT INFORMATION
  Report Type: Report from Study
  Country: CO (occurrence: CO)
  Receive Date: 20150219
  Receipt Date: 20150320
  Transmission Date: 20150721
  Serious: Yes (Death, Hospitalization, Other)
  Sender: FDA-Public Use
  Company Number: CO-ROCHE-1540365

PATIENT
  Age: 86 Year
  Sex: Female
  Weight: 43 kg

DRUGS (5)
  1. LUCENTIS [Suspect]
     Active Substance: RANIBIZUMAB
     Dosage: THIRD APPLICATION
     Route: 050
     Dates: start: 201408, end: 201408
  2. LUCENTIS [Suspect]
     Active Substance: RANIBIZUMAB
     Indication: VISUAL IMPAIRMENT
     Dosage: FIRST APPLICATION
     Route: 050
     Dates: start: 2014
  3. INSULIN [Concomitant]
     Active Substance: INSULIN NOS
  4. LUCENTIS [Suspect]
     Active Substance: RANIBIZUMAB
     Dosage: SECOND APPLICATION
     Route: 050
  5. LOSARTAN [Concomitant]
     Active Substance: LOSARTAN

REACTIONS (4)
  - Intracardiac thrombus [Unknown]
  - Infarction [Unknown]
  - Product use issue [Unknown]
  - Cerebral haemorrhage [Fatal]

NARRATIVE: CASE EVENT DATE: 20141226
